FAERS Safety Report 24705989 (Version 1)
Quarter: 2024Q4

REPORT INFORMATION
  Report Type: Report from Study
  Country: CA (occurrence: CA)
  Receive Date: 20241206
  Receipt Date: 20241206
  Transmission Date: 20250115
  Serious: Yes (Hospitalization)
  Sender: CSL BEHRING
  Company Number: CA-BEH-VIT-2024-10956

PATIENT
  Age: 63 Year
  Sex: Female

DRUGS (1)
  1. VELTASSA [Suspect]
     Active Substance: PATIROMER
     Indication: Hyperkalaemia
     Dosage: 8.4 GM, DAILY, ONE SACHET
     Route: 048
     Dates: start: 20240812, end: 20241118

REACTIONS (1)
  - Haemodialysis [Unknown]

NARRATIVE: CASE EVENT DATE: 20241118
